FAERS Safety Report 14861296 (Version 2)
Quarter: 2018Q2

REPORT INFORMATION
  Report Type: Report from Study
  Country: CA (occurrence: CA)
  Receive Date: 20180508
  Receipt Date: 20180626
  Transmission Date: 20180711
  Serious: Yes (Hospitalization)
  Sender: FDA-Public Use
  Company Number: CA-JNJFOC-20180339851

PATIENT
  Age: 55 Year
  Sex: Male
  Weight: 80 kg

DRUGS (3)
  1. STELARA [Suspect]
     Active Substance: USTEKINUMAB
     Indication: CROHN^S DISEASE
     Route: 058
     Dates: start: 20171229
  2. STELARA [Suspect]
     Active Substance: USTEKINUMAB
     Indication: CROHN^S DISEASE
     Dosage: STRENGTH = 90 MG
     Route: 058
     Dates: start: 20180222
  3. STELARA [Suspect]
     Active Substance: USTEKINUMAB
     Indication: CROHN^S DISEASE
     Dosage: (ALSO REPORTED AS 04-APR-2018)
     Route: 058
     Dates: start: 20180401

REACTIONS (6)
  - Postoperative abscess [Recovered/Resolved]
  - Off label use [Unknown]
  - Abdominal pain lower [Unknown]
  - Pyrexia [Unknown]
  - Product use issue [Unknown]
  - Intestinal fistula [Unknown]

NARRATIVE: CASE EVENT DATE: 20171229
